FAERS Safety Report 5840191-9 (Version None)
Quarter: 2008Q3

REPORT INFORMATION
  Report Type: 
  Country: None (occurrence: None)
  Receive Date: 20080811
  Receipt Date: 20080729
  Transmission Date: 20090109
  Serious: Yes (Hospitalization)
  Sender: FDA-Public Use
  Company Number: JP-ROCHE-579319

PATIENT
  Age: 79 Year
  Sex: Female

DRUGS (2)
  1. LUPRAC [Suspect]
     Indication: DRUG USE FOR UNKNOWN INDICATION
     Route: 048
  2. TRICHLORMETHIAZIDE [Concomitant]

REACTIONS (2)
  - HYPOKALAEMIA [None]
  - PSEUDOALDOSTERONISM [None]
